FAERS Safety Report 25298863 (Version 2)
Quarter: 2025Q2

REPORT INFORMATION
  Report Type: Spontaneous
  Country: US (occurrence: US)
  Receive Date: 20250512
  Receipt Date: 20250604
  Transmission Date: 20250717
  Serious: Yes (Other)
  Sender: BRISTOL-MYERS SQUIBB COMPANY
  Company Number: US-BRISTOL-MYERS SQUIBB COMPANY-2025-065926

PATIENT
  Age: 60 Year
  Sex: Female
  Weight: 72.57 kg

DRUGS (1)
  1. OPDUALAG [Suspect]
     Active Substance: NIVOLUMAB\RELATLIMAB-RMBW
     Indication: Malignant melanoma stage IV
     Dosage: DOSE AND STRENGTH: 480/120 (UNIT NOT PROVIDED)
     Route: 042
     Dates: start: 20250331, end: 20250428

REACTIONS (6)
  - Nausea [Unknown]
  - Headache [Unknown]
  - Ear pain [Unknown]
  - Cytokine storm [Unknown]
  - Reaction to preservatives [Unknown]
  - Rash [Unknown]

NARRATIVE: CASE EVENT DATE: 20250401
